FAERS Safety Report 7744868-X (Version None)
Quarter: 2011Q3

REPORT INFORMATION
  Report Type: 
  Country: None (occurrence: None)
  Receive Date: 20110912
  Receipt Date: 20110908
  Transmission Date: 20111222
  Serious: Yes (Other)
  Sender: FDA-Public Use
  Company Number: US-GENENTECH-323703

PATIENT
  Sex: Female
  Weight: 74.376 kg

DRUGS (1)
  1. RITUXAN [Suspect]
     Indication: RHEUMATOID ARTHRITIS
     Dosage: 1000 MG, Q6M
     Route: 042
     Dates: end: 20110819

REACTIONS (3)
  - SWOLLEN TONGUE [None]
  - BLOOD PRESSURE INCREASED [None]
  - DYSARTHRIA [None]
